FAERS Safety Report 7731126-2 (Version None)
Quarter: 2011Q3

REPORT INFORMATION
  Report Type: 
  Country: None (occurrence: None)
  Receive Date: 20110906
  Receipt Date: 20110906
  Transmission Date: 20111222
  Serious: Yes (Other)
  Sender: FDA-Public Use
  Company Number: None

PATIENT
  Age: 62 Year
  Sex: Female
  Weight: 58.059 kg

DRUGS (2)
  1. PRAVASTATIN SODIUM [Suspect]
     Indication: HYPERLIPIDAEMIA
     Dates: start: 20110802, end: 20110904
  2. PRAVASTATIN SODIUM [Suspect]
     Indication: LOW DENSITY LIPOPROTEIN INCREASED
     Dates: start: 20110802, end: 20110904

REACTIONS (12)
  - ABASIA [None]
  - FATIGUE [None]
  - BLOOD PRESSURE INCREASED [None]
  - HEADACHE [None]
  - QUALITY OF LIFE DECREASED [None]
  - MUSCLE SPASMS [None]
  - ARRHYTHMIA [None]
  - MUSCULOSKELETAL DISCOMFORT [None]
  - ANXIETY [None]
  - ARTHROPATHY [None]
  - PRESYNCOPE [None]
  - TOXICITY TO VARIOUS AGENTS [None]
